FAERS Safety Report 25387168 (Version 7)
Quarter: 2025Q4

REPORT INFORMATION
  Report Type: Spontaneous
  Country: US (occurrence: US)
  Receive Date: 20250602
  Receipt Date: 20251028
  Transmission Date: 20260117
  Serious: No
  Sender: ELI LILLY AND COMPANY
  Company Number: US-ELI_LILLY_AND_COMPANY-US202506000396

PATIENT
  Age: 80 Year
  Sex: Male

DRUGS (8)
  1. TADALAFIL [Suspect]
     Active Substance: TADALAFIL
     Indication: Product used for unknown indication
     Dosage: UNK UNK, UNKNOWN
     Route: 065
  2. TYVASO DPI [Suspect]
     Active Substance: TREPROSTINIL
     Indication: Pulmonary arterial hypertension
     Dosage: 64 UG, QID
     Route: 055
     Dates: start: 20250420
  3. TYVASO DPI [Suspect]
     Active Substance: TREPROSTINIL
     Dosage: 48 UG, QID
     Route: 055
     Dates: start: 202504
  4. TYVASO DPI [Suspect]
     Active Substance: TREPROSTINIL
     Dosage: 32 UG, UNKNOWN
     Route: 055
  5. TYVASO DPI [Suspect]
     Active Substance: TREPROSTINIL
     Dosage: 128 UG, QID (64 MCG + 64 MCG)
     Route: 055
  6. TYVASO DPI [Suspect]
     Active Substance: TREPROSTINIL
     Dosage: 112 UG, QID  (64 MCG + 48 MCG)
     Route: 055
  7. TYVASO DPI [Suspect]
     Active Substance: TREPROSTINIL
     Dosage: 80 UG, QID  (64 MCG + 16 MCG)
     Route: 055
  8. TYVASO DPI [Suspect]
     Active Substance: TREPROSTINIL
     Dosage: 64 MCG, QID
     Route: 055

REACTIONS (12)
  - Bronchitis [Not Recovered/Not Resolved]
  - Throat irritation [Unknown]
  - Butterfly rash [Unknown]
  - Hypoxia [Unknown]
  - Oropharyngeal pain [Not Recovered/Not Resolved]
  - Temporomandibular pain and dysfunction syndrome [Not Recovered/Not Resolved]
  - Cough [Recovering/Resolving]
  - Flushing [Unknown]
  - Headache [Recovering/Resolving]
  - Hot flush [Unknown]
  - Nausea [Unknown]
  - Dyspnoea exertional [Unknown]

NARRATIVE: CASE EVENT DATE: 20250701
